FAERS Safety Report 14489395 (Version 1)
Quarter: 2018Q1

REPORT INFORMATION
  Report Type: Spontaneous
  Country: US (occurrence: US)
  Receive Date: 20180205
  Receipt Date: 20180205
  Transmission Date: 20180509
  Serious: No
  Sender: FDA-Public Use
  Company Number: US-AMGEN-USASP2017023904

PATIENT

DRUGS (3)
  1. NEULASTA [Suspect]
     Active Substance: PEGFILGRASTIM
     Indication: PRODUCT USED FOR UNKNOWN INDICATION
     Dosage: UNK
     Route: 065
  2. CARBOPLATIN W/PACLITAXEL [Concomitant]
     Active Substance: CARBOPLATIN\PACLITAXEL
     Dosage: UNK
  3. ZOCOR [Concomitant]
     Active Substance: SIMVASTATIN
     Dosage: UNK

REACTIONS (2)
  - Neutrophil count decreased [Unknown]
  - White blood cell count abnormal [Unknown]
